FAERS Safety Report 17254950 (Version 1)
Quarter: 2020Q1

REPORT INFORMATION
  Report Type: Report from Study
  Country: US (occurrence: US)
  Receive Date: 20200109
  Receipt Date: 20200109
  Transmission Date: 20200409
  Serious: Yes (Death)
  Sender: FDA-Public Use
  Company Number: US-HLSUS-2019-US-001380

PATIENT
  Age: 75 Year
  Sex: Female

DRUGS (9)
  1. LOXAPINE. [Concomitant]
     Active Substance: LOXAPINE
     Dosage: 10 MG Q AM AND 25 MG Q HS
     Route: 048
  2. METFORMIN [Concomitant]
     Active Substance: METFORMIN HYDROCHLORIDE
  3. CLOZAPINE. [Suspect]
     Active Substance: CLOZAPINE
     Dosage: 150MG Q AM + 200MG Q HS
  4. COLACE [Concomitant]
     Active Substance: DOCUSATE SODIUM
  5. RANITIDINE. [Concomitant]
     Active Substance: RANITIDINE
  6. EFFEXOR [Concomitant]
     Active Substance: VENLAFAXINE HYDROCHLORIDE
     Dosage: 50 MG BID
     Route: 048
  7. GLYCOPYRROLATE. [Concomitant]
     Active Substance: GLYCOPYRROLATE
  8. FLEET ENEMA [Concomitant]
     Active Substance: SODIUM PHOSPHATE, DIBASIC\SODIUM PHOSPHATE, MONOBASIC
     Dosage: PRN
  9. POLYETHYLENE GLYCOL [Concomitant]
     Active Substance: POLYETHYLENE GLYCOLS
     Dosage: DAILY PRN

REACTIONS (2)
  - Intestinal perforation [Fatal]
  - Respiratory failure [Fatal]
